FAERS Safety Report 4755149-0 (Version None)
Quarter: 2005Q3

REPORT INFORMATION
  Report Type: 
  Country: None (occurrence: None)
  Receive Date: 20050829
  Receipt Date: 20050817
  Transmission Date: 20060218
  Serious: Yes (Hospitalization)
  Sender: FDA-Public Use
  Company Number: DE-BRISTOL-MYERS SQUIBB COMPANY-13082177

PATIENT
  Age: 21 Year
  Sex: Male

DRUGS (2)
  1. ABILIFY [Suspect]
     Indication: BIPOLAR I DISORDER
     Dosage: 16-AUG-2005 DOSE REDUCED TO 10MG
     Route: 048
     Dates: start: 20050809
  2. SOLIAN [Concomitant]
     Indication: BIPOLAR I DISORDER
     Route: 048
     Dates: start: 20050725, end: 20050811

REACTIONS (1)
  - SPEECH DISORDER [None]
